FAERS Safety Report 4452372-X (Version None)
Quarter: 2004Q3

REPORT INFORMATION
  Report Type: 
  Country: None (occurrence: None)
  Receive Date: 20040917
  Receipt Date: 20040908
  Transmission Date: 20050211
  Serious: Yes (Death, Hospitalization, Other)
  Sender: FDA-Public Use
  Company Number: PHBS2004JP11944

PATIENT
  Age: 18 Year
  Sex: Female

DRUGS (20)
  1. CYCLOSPORINE [Suspect]
     Indication: BONE MARROW TRANSPLANT
     Dosage: 2.7 MG/KG/DAY
     Route: 065
  2. CYCLOPHOSPHAMIDE [Suspect]
     Indication: BONE MARROW TRANSPLANT
     Dosage: 60 MG/KG/DAY
     Route: 065
  3. CYCLOPHOSPHAMIDE [Suspect]
     Dosage: 40 MG/KG/DAY
     Route: 065
  4. CYTOSINE ARABINOSIDE [Concomitant]
     Dosage: 200 MG/D
     Route: 065
  5. ETOPOSIDE [Concomitant]
     Dosage: 200 MG/DAY
     Route: 065
  6. NEUPOGEN [Concomitant]
     Dosage: 250 UG/DAY
     Route: 065
  7. METHOTREXATE [Concomitant]
     Dosage: 10 MG/DAY
  8. METHOTREXATE [Concomitant]
     Dosage: 5 MG/DAY
  9. DOBUTAMINE HCL [Concomitant]
  10. FUROSEMIDE [Concomitant]
  11. MESNA [Concomitant]
     Indication: PROPHYLAXIS
  12. HEPARIN SODIUM [Concomitant]
     Indication: PROPHYLAXIS
  13. DIGOXIN [Concomitant]
     Indication: HEART RATE INCREASED
  14. NITROGLYCERIN [Concomitant]
     Dosage: 0.5 UG/KG/MIN
  15. PIMOBENDAN [Concomitant]
     Dosage: 0.12 MG/KG
  16. AMRINONE [Concomitant]
     Dosage: 3 - 5 UG/KG/MIN
  17. CAPTOPRIL [Concomitant]
  18. CARVEDILOL [Concomitant]
  19. DOPAMINE HCL [Concomitant]
  20. IRRADIATION [Concomitant]

REACTIONS (16)
  - BLOOD CREATININE INCREASED [None]
  - CARDIOMEGALY [None]
  - CARDIOMYOPATHY [None]
  - COUGH [None]
  - DYSPNOEA [None]
  - EJECTION FRACTION DECREASED [None]
  - GRAFT VERSUS HOST DISEASE [None]
  - HEART RATE INCREASED [None]
  - MITRAL VALVE INCOMPETENCE [None]
  - MYELOBLASTOMA [None]
  - PNEUMONIA [None]
  - PULMONARY CONGESTION [None]
  - RENAL IMPAIRMENT [None]
  - TRICUSPID VALVE INCOMPETENCE [None]
  - URINE OUTPUT DECREASED [None]
  - WEIGHT INCREASED [None]
